FAERS Safety Report 7074629-9 (Version None)
Quarter: 2010Q4

REPORT INFORMATION
  Report Type: 
  Country: None (occurrence: None)
  Receive Date: 20101029
  Receipt Date: 20101025
  Transmission Date: 20110411
  Serious: Yes (Death)
  Sender: FDA-Public Use
  Company Number: A0888666A

PATIENT
  Age: 93 Year
  Sex: Female

DRUGS (7)
  1. ADVAIR DISKUS 100/50 [Suspect]
     Indication: CHRONIC OBSTRUCTIVE PULMONARY DISEASE
     Route: 055
  2. LISINOPRIL [Concomitant]
  3. METOPROLOL [Concomitant]
  4. LASIX [Concomitant]
  5. COUMADIN [Concomitant]
  6. ALBUTEROL [Concomitant]
  7. ACETAMINOPHEN [Concomitant]

REACTIONS (1)
  - DEATH [None]
